FAERS Safety Report 24672738 (Version 1)
Quarter: 2024Q4

REPORT INFORMATION
  Report Type: Report from Study
  Country: US (occurrence: US)
  Receive Date: 20241127
  Receipt Date: 20241127
  Transmission Date: 20250115
  Serious: Yes (Hospitalization, Other)
  Sender: JOHNSON AND JOHNSON
  Company Number: US-JNJFOC-20241143100

PATIENT
  Age: 68 Year
  Sex: Female
  Weight: 50.802 kg

DRUGS (2)
  1. EPOPROSTENOL SODIUM [Suspect]
     Active Substance: EPOPROSTENOL SODIUM
     Indication: Pulmonary arterial hypertension
  2. OPSUMIT [Concomitant]
     Active Substance: MACITENTAN

REACTIONS (6)
  - Lung disorder [Unknown]
  - Device alarm issue [Unknown]
  - Device occlusion [Unknown]
  - Dementia [Unknown]
  - Loss of consciousness [Unknown]
  - Underdose [Unknown]

NARRATIVE: CASE EVENT DATE: 20241115
